FAERS Safety Report 9476065 (Version 2)
Quarter: 2013Q3

REPORT INFORMATION
  Report Type: Spontaneous
  Country: BE (occurrence: JP)
  Receive Date: 20130826
  Receipt Date: 20130826
  Transmission Date: 20140515
  Serious: Yes (Hospitalization)
  Sender: FDA-Public Use
  Company Number: BE-RANBAXY-2006US-01845

PATIENT
  Age: 73 Year
  Sex: Female
  Weight: 33.5 kg

DRUGS (3)
  1. METFORMIN [Suspect]
     Indication: TYPE 2 DIABETES MELLITUS
     Dosage: 500 MG/D IN 2 DIVIDED DOSES AFTER THE MORNING AND EVENING MEALS
     Route: 048
  2. NATEGLINIDE [Concomitant]
     Indication: TYPE 2 DIABETES MELLITUS
     Dosage: 270 MG/D IN 3 DIVIDED DOSES BEFORE MEALS
     Route: 048
  3. PIOGLITAZONE [Concomitant]
     Indication: TYPE 2 DIABETES MELLITUS
     Dosage: 15 MG, QD BEFORE BREAKFAST
     Route: 048

REACTIONS (1)
  - Hepatotoxicity [Recovering/Resolving]
